FAERS Safety Report 22821853 (Version 4)
Quarter: 2023Q4

REPORT INFORMATION
  Report Type: Spontaneous
  Country: US (occurrence: US)
  Receive Date: 20230814
  Receipt Date: 20231121
  Transmission Date: 20240110
  Serious: No
  Sender: FDA-Public Use
  Company Number: US-Blueprint Medicines Corporation-1338

PATIENT
  Sex: Male

DRUGS (3)
  1. AYVAKIT [Suspect]
     Active Substance: AVAPRITINIB
     Indication: Gastrointestinal stromal tumour
     Route: 065
     Dates: start: 20230718
  2. AYVAKIT [Suspect]
     Active Substance: AVAPRITINIB
     Route: 065
     Dates: start: 20230718
  3. AYVAKIT [Suspect]
     Active Substance: AVAPRITINIB
     Route: 065
     Dates: start: 20230718

REACTIONS (13)
  - Emotional disorder [Unknown]
  - Dysphonia [Unknown]
  - Hyperacusis [Unknown]
  - Ear congestion [Unknown]
  - Platelet disorder [Unknown]
  - Red blood cell count [Unknown]
  - Fatigue [Unknown]
  - Lacrimation increased [Unknown]
  - Periorbital swelling [Unknown]
  - Dizziness [Unknown]
  - Taste disorder [Unknown]
  - White blood cell count decreased [Unknown]
  - Intentional dose omission [Unknown]
